FAERS Safety Report 8365380-3 (Version None)
Quarter: 2012Q2

REPORT INFORMATION
  Report Type: 
  Country: None (occurrence: None)
  Receive Date: 20120516
  Receipt Date: 20120510
  Transmission Date: 20120825
  Serious: Yes (Death, Other)
  Sender: FDA-Public Use
  Company Number: AU-PFIZER INC-2012113680

PATIENT
  Sex: Female

DRUGS (3)
  1. METHADONE [Suspect]
  2. TOLTERODINE TARTRATE [Suspect]
     Dosage: UNK
     Dates: start: 20081110
  3. SEROQUEL [Suspect]

REACTIONS (2)
  - OVERDOSE [None]
  - DRUG ABUSE [None]
